FAERS Safety Report 17298582 (Version 1)
Quarter: 2020Q1

REPORT INFORMATION
  Report Type: Spontaneous
  Country: US (occurrence: US)
  Receive Date: 20200122
  Receipt Date: 20200122
  Transmission Date: 20200409
  Serious: Yes (Other)
  Sender: FDA-Public Use
  Company Number: US-LUPIN PHARMACEUTICALS INC.-2019-08449

PATIENT
  Age: 72 Year
  Sex: Female

DRUGS (1)
  1. HYDROXYCHLOROQUINE [Suspect]
     Active Substance: HYDROXYCHLOROQUINE
     Indication: SJOGREN^S SYNDROME
     Dosage: 5.44 MILLIGRAM/KILOGRAM, QD, (TOTAL DOSE: 1952 GRAMS)
     Route: 065

REACTIONS (2)
  - Off label use [Unknown]
  - Retinopathy [Unknown]
